FAERS Safety Report 5739934-4 (Version None)
Quarter: 2008Q2

REPORT INFORMATION
  Report Type: 
  Country: None (occurrence: None)
  Receive Date: 20080516
  Receipt Date: 20080507
  Transmission Date: 20081010
  Serious: Yes (Other)
  Sender: FDA-Public Use
  Company Number: DK-BAYER-200816140GPV

PATIENT
  Sex: Female

DRUGS (2)
  1. MIRENA [Suspect]
     Indication: MENORRHAGIA
     Route: 015
     Dates: start: 20080311, end: 20080318
  2. LAMICTAL [Concomitant]
     Indication: EPILEPSY
     Route: 065

REACTIONS (1)
  - EPILEPSY [None]
